FAERS Safety Report 17073875 (Version 1)
Quarter: 2019Q4

REPORT INFORMATION
  Report Type: Spontaneous
  Country: US (occurrence: US)
  Receive Date: 20191126
  Receipt Date: 20191126
  Transmission Date: 20200122
  Serious: Yes (Other)
  Sender: FDA-Public Use
  Company Number: US-ALVOGEN-2019-ALVOGEN-100361

PATIENT
  Age: 75 Year
  Sex: Female

DRUGS (2)
  1. LISINOPRIL. [Suspect]
     Active Substance: LISINOPRIL
     Indication: HYPERTENSION
     Dosage: STARTED TAKING YEARS AGO
  2. METOPROLOL. [Suspect]
     Active Substance: METOPROLOL
     Indication: BUNDLE BRANCH BLOCK LEFT
     Route: 048

REACTIONS (5)
  - Diabetes mellitus [Unknown]
  - Chronic obstructive pulmonary disease [Unknown]
  - Oxygen saturation decreased [Unknown]
  - Emphysema [Unknown]
  - Asthma [Unknown]
